FAERS Safety Report 4656112-0 (Version None)
Quarter: 2005Q2

REPORT INFORMATION
  Report Type: 
  Country: None (occurrence: None)
  Receive Date: 20050509
  Receipt Date: 20050426
  Transmission Date: 20051028
  Serious: Yes (Other)
  Sender: FDA-Public Use
  Company Number: DE-JNJFOC-20050406395

PATIENT
  Sex: Male

DRUGS (2)
  1. TOPAMAX [Suspect]
     Indication: EPILEPSY
     Route: 049
  2. OFIRIL [Concomitant]
     Indication: EPILEPSY
     Route: 049

REACTIONS (2)
  - HEPATITIS C [None]
  - VASCULITIS [None]
